FAERS Safety Report 8789023 (Version 2)
Quarter: 2012Q4

REPORT INFORMATION
  Report Type: 
  Country: US (occurrence: US)
  Receive Date: 20120917
  Receipt Date: 20121002
  Transmission Date: 20130627
  Serious: Yes (Other)
  Sender: FDA-Public Use
  Company Number: US-009507513-1209USA004425

PATIENT
  Age: 74 Year
  Sex: Male
  Weight: 94.33 kg

DRUGS (6)
  1. PROSCAR [Suspect]
     Indication: VASCULAR GRAFT
     Dosage: 5 mg, UNK
     Route: 048
     Dates: start: 2006
  2. HYDROCHLOROTHIAZIDE [Suspect]
     Indication: VASCULAR GRAFT
     Dosage: 25 mg, qd
     Dates: start: 2006
  3. PLAVIX [Suspect]
     Indication: VASCULAR GRAFT
     Dosage: UNK
     Dates: start: 2006
  4. VASOTEC [Suspect]
     Indication: VASCULAR GRAFT
     Dosage: 10 mg, UNK
     Dates: start: 2006
  5. CARDURA [Suspect]
     Indication: CARDIAC DISORDER
     Dosage: 8 mg, qd
     Dates: start: 2005
  6. LIPITOR [Suspect]
     Indication: BLOOD CHOLESTEROL
     Dosage: 20 mg, qd
     Dates: start: 2005

REACTIONS (1)
  - Vascular graft [Unknown]
